FAERS Safety Report 21578388 (Version 1)
Quarter: 2022Q4

REPORT INFORMATION
  Report Type: Spontaneous
  Country: US (occurrence: US)
  Receive Date: 20221110
  Receipt Date: 20221110
  Transmission Date: 20230113
  Serious: Yes (Other)
  Sender: FDA-Public Use
  Company Number: US-FreseniusKabi-FK202215189

PATIENT
  Age: 68 Year
  Sex: Male

DRUGS (4)
  1. CARBOPLATIN [Suspect]
     Active Substance: CARBOPLATIN
     Indication: Thyroid cancer
     Route: 065
  2. CARBOPLATIN [Suspect]
     Active Substance: CARBOPLATIN
     Dosage: TWO ADDITIONAL CYCLES, HIGH-DOSE, EVERY 3 WEEKS
     Route: 065
  3. PACLITAXEL [Suspect]
     Active Substance: PACLITAXEL
     Indication: Thyroid cancer
     Route: 065
  4. PACLITAXEL [Suspect]
     Active Substance: PACLITAXEL
     Dosage: TWO ADDITIONAL CYCLES, HIGH-DOSE, EVERY 3 WEEKS
     Route: 065

REACTIONS (6)
  - Hypothyroidism [Unknown]
  - Dermatitis [Unknown]
  - Dysphagia [Unknown]
  - Dry mouth [Unknown]
  - Fatigue [Unknown]
  - Mucosal inflammation [Unknown]
